FAERS Safety Report 6502807-3 (Version None)
Quarter: 2009Q4

REPORT INFORMATION
  Report Type: 
  Country: None (occurrence: None)
  Receive Date: 20091127
  Receipt Date: 20090916
  Transmission Date: 20100525
  Serious: No
  Sender: FDA-Public Use
  Company Number: 001718

PATIENT
  Age: 20 Year
  Sex: Female

DRUGS (3)
  1. LACOSAMIDE [Suspect]
     Dosage: 100 MG BID
  2. TOPIRAMATE [Concomitant]
  3. LAMOTRIGINE [Concomitant]

REACTIONS (1)
  - FEMALE ORGASMIC DISORDER [None]
